FAERS Safety Report 16727372 (Version 1)
Quarter: 2019Q3

REPORT INFORMATION
  Report Type: Spontaneous
  Country: US (occurrence: US)
  Receive Date: 20190822
  Receipt Date: 20190822
  Transmission Date: 20191005
  Serious: No
  Sender: FDA-Public Use
  Company Number: US-SA-2019SA228562

PATIENT
  Age: 68 Year
  Sex: Female

DRUGS (7)
  1. DICLOFENAC [Concomitant]
     Active Substance: DICLOFENAC
  2. ROSUVASTATIN. [Concomitant]
     Active Substance: ROSUVASTATIN
  3. DULOXETINE. [Concomitant]
     Active Substance: DULOXETINE
  4. LORAZEPAM. [Concomitant]
     Active Substance: LORAZEPAM
  5. BUPROPION. [Concomitant]
     Active Substance: BUPROPION
  6. DUPIXENT [Suspect]
     Active Substance: DUPILUMAB
     Dosage: 300 MG, QOW
     Route: 058
     Dates: start: 20190130
  7. TIZANIDINE. [Concomitant]
     Active Substance: TIZANIDINE

REACTIONS (1)
  - Condition aggravated [Not Recovered/Not Resolved]

NARRATIVE: CASE EVENT DATE: 201907
